FAERS Safety Report 25123743 (Version 2)
Quarter: 2025Q2

REPORT INFORMATION
  Report Type: Report from Study
  Country: IT (occurrence: IT)
  Receive Date: 20250326
  Receipt Date: 20250402
  Transmission Date: 20250717
  Serious: Yes (Other)
  Sender: AUROBINDO
  Company Number: IT-GIULIANI-008751

PATIENT
  Age: 44 Year
  Sex: Male

DRUGS (2)
  1. FINASTERIDE [Suspect]
     Active Substance: FINASTERIDE
     Indication: Androgenetic alopecia
     Route: 065
  2. PROPECIA [Suspect]
     Active Substance: FINASTERIDE
     Indication: Androgenetic alopecia
     Route: 065

REACTIONS (4)
  - Mental impairment [Not Recovered/Not Resolved]
  - Sexual dysfunction [Not Recovered/Not Resolved]
  - Anxiety [Not Recovered/Not Resolved]
  - Depression [Not Recovered/Not Resolved]
